FAERS Safety Report 23309851 (Version 2)
Quarter: 2024Q2

REPORT INFORMATION
  Report Type: Spontaneous
  Country: NL (occurrence: NL)
  Receive Date: 20231218
  Receipt Date: 20240502
  Transmission Date: 20240716
  Serious: Yes (Death)
  Sender: FDA-Public Use
  Company Number: None

PATIENT
  Age: 78 Year
  Sex: Male
  Weight: 73 kg

DRUGS (3)
  1. DOCETAXEL [Suspect]
     Active Substance: DOCETAXEL\DOCETAXEL ANHYDROUS
     Indication: Prostate cancer metastatic
     Dosage: 102 MG 1X 3 WEEKS,  BRAND NAME NOT SPECIFIED
     Route: 065
     Dates: start: 20230315, end: 20230315
  2. PIPERACILLIN AND TAZOBACTAM [Concomitant]
     Active Substance: PIPERACILLIN SODIUM\TAZOBACTAM SODIUM
     Indication: Product used for unknown indication
     Dosage: 4500MG 4DD1, INFVLST, FORM STRENGTH: 40/5MG/ML, BRAND NAME NOT SPECIFIED,
     Route: 065
  3. METAMIZOL [Suspect]
     Active Substance: METAMIZOLE SODIUM
     Indication: Cancer pain
     Dosage: 3DD2, BRAND NAME NOT SPECIFIED
     Route: 065
     Dates: start: 20230202, end: 20230329

REACTIONS (2)
  - Neutropenic colitis [Fatal]
  - Febrile neutropenia [Fatal]

NARRATIVE: CASE EVENT DATE: 20230322
